FAERS Safety Report 19164203 (Version 1)
Quarter: 2021Q2

REPORT INFORMATION
  Report Type: Spontaneous
  Country: US (occurrence: US)
  Receive Date: 20210421
  Receipt Date: 20210421
  Transmission Date: 20210717
  Serious: No
  Sender: FDA-Public Use
  Company Number: US-TEVA-2021-US-1900546

PATIENT
  Age: 66 Year
  Sex: Female
  Weight: 53.98 kg

DRUGS (1)
  1. LEVOFLOXACIN. [Suspect]
     Active Substance: LEVOFLOXACIN
     Route: 065

REACTIONS (3)
  - Sciatica [Unknown]
  - Pain in extremity [Unknown]
  - Neuralgia [Unknown]
